FAERS Safety Report 24053231 (Version 1)
Quarter: 2024Q3

REPORT INFORMATION
  Report Type: Spontaneous
  Country: EU (occurrence: EU)
  Receive Date: 20240705
  Receipt Date: 20240705
  Transmission Date: 20241016
  Serious: Yes (Death)
  Sender: OCTAPHARMA
  Company Number: DE-OCTA-LIT03824

PATIENT
  Age: 61 Year
  Sex: Male

DRUGS (3)
  1. FIBRINOGEN HUMAN [Suspect]
     Active Substance: FIBRINOGEN HUMAN
     Indication: Hypofibrinogenaemia
     Route: 042
  2. TRANEXAMIC ACID [Concomitant]
     Active Substance: TRANEXAMIC ACID
     Indication: Hypofibrinogenaemia
  3. VITAMIN K [Concomitant]
     Active Substance: PHYTONADIONE
     Indication: Hypofibrinogenaemia

REACTIONS (1)
  - Cerebral infarction [Fatal]
